FAERS Safety Report 6803786-1 (Version None)
Quarter: 2010Q2

REPORT INFORMATION
  Report Type: 
  Country: None (occurrence: None)
  Receive Date: 20100628
  Receipt Date: 20100622
  Transmission Date: 20101027
  Serious: Yes (Death, Hospitalization, Other)
  Sender: FDA-Public Use
  Company Number: US-AMGEN-US353444

PATIENT
  Sex: Male

DRUGS (2)
  1. NPLATE [Suspect]
     Indication: IDIOPATHIC THROMBOCYTOPENIC PURPURA
     Route: 065
     Dates: start: 20090401, end: 20090511
  2. PLATELETS [Concomitant]
     Route: 042

REACTIONS (3)
  - CARDIAC DISORDER [None]
  - DEATH [None]
  - THERAPEUTIC RESPONSE DECREASED [None]
